FAERS Safety Report 6814122-9 (Version None)
Quarter: 2010Q3

REPORT INFORMATION
  Report Type: 
  Country: None (occurrence: None)
  Receive Date: 20100702
  Receipt Date: 20100122
  Transmission Date: 20110219
  Serious: Yes (Hospitalization)
  Sender: FDA-Public Use
  Company Number: A0841027A

PATIENT
  Age: 52 Year
  Sex: Female

DRUGS (17)
  1. ADVAIR DISKUS 100/50 [Suspect]
     Indication: BRONCHIECTASIS
     Dosage: 2PUFF TWICE PER DAY
     Route: 055
     Dates: start: 20070101
  2. BROVANA [Concomitant]
  3. ASPIRIN [Concomitant]
  4. SOMA [Concomitant]
  5. KLONOPIN [Concomitant]
  6. MORPHINE [Concomitant]
  7. LASIX [Concomitant]
  8. ALDACTONE [Concomitant]
  9. BUMEX [Concomitant]
  10. POTASSIUM [Concomitant]
  11. DULCOLAX [Concomitant]
  12. COLACE [Concomitant]
  13. RESTASIS [Concomitant]
  14. SYNTHROID [Concomitant]
  15. MUCINEX [Concomitant]
  16. SODIUM CHLORIDE [Concomitant]
  17. MULTAQ [Concomitant]

REACTIONS (1)
  - PNEUMONIA [None]
